FAERS Safety Report 6633900-2 (Version None)
Quarter: 2010Q1

REPORT INFORMATION
  Report Type: 
  Country: None (occurrence: None)
  Receive Date: 20100315
  Receipt Date: 20100308
  Transmission Date: 20100710
  Serious: Yes (Hospitalization)
  Sender: FDA-Public Use
  Company Number: TN-KINGPHARMUSA00001-K201000288

PATIENT
  Age: 7 Year
  Sex: Male

DRUGS (1)
  1. SEPTRA [Suspect]
     Indication: GASTROINTESTINAL INFECTION
     Dosage: UNK

REACTIONS (18)
  - ACUTE FEBRILE NEUTROPHILIC DERMATOSIS [None]
  - ANAEMIA [None]
  - ASTHENIA [None]
  - C-REACTIVE PROTEIN INCREASED [None]
  - CHILLS [None]
  - CONJUNCTIVAL DISCOLOURATION [None]
  - INFECTION [None]
  - LYMPHOCYTIC INFILTRATION [None]
  - MUCOUS MEMBRANE DISORDER [None]
  - NEUTROPHILIA [None]
  - PAIN OF SKIN [None]
  - PURPURA [None]
  - PYREXIA [None]
  - RED BLOOD CELL SEDIMENTATION RATE INCREASED [None]
  - SKIN LESION [None]
  - SKIN NECROSIS [None]
  - SKIN OEDEMA [None]
  - SKIN PLAQUE [None]
